FAERS Safety Report 6454292-8 (Version None)
Quarter: 2009Q4

REPORT INFORMATION
  Report Type: 
  Country: None (occurrence: None)
  Receive Date: 20091124
  Receipt Date: 20091111
  Transmission Date: 20100525
  Serious: Yes (Life-Threatening, Disabling)
  Sender: FDA-Public Use
  Company Number: GB-ELI_LILLY_AND_COMPANY-GB200911002788

PATIENT
  Age: 24 Year
  Sex: Male
  Weight: 90 kg

DRUGS (2)
  1. ZYPREXA [Suspect]
     Dosage: 20 MG, UNKNOWN
     Route: 048
     Dates: start: 20041001, end: 20090201
  2. CITALOPRAM HYDROBROMIDE [Concomitant]
     Indication: ANXIETY
     Dosage: 20 MG, UNKNOWN
     Route: 048

REACTIONS (10)
  - APATHY [None]
  - ASPARTATE AMINOTRANSFERASE INCREASED [None]
  - BLOOD GLUCOSE INCREASED [None]
  - LIVER INJURY [None]
  - MOVEMENT DISORDER [None]
  - PERSONALITY CHANGE [None]
  - PHYSICAL DISABILITY [None]
  - TRAUMATIC BRAIN INJURY [None]
  - UNRESPONSIVE TO STIMULI [None]
  - WEIGHT INCREASED [None]
